FAERS Safety Report 24429196 (Version 3)
Quarter: 2025Q3

REPORT INFORMATION
  Report Type: Report from Study
  Country: CA (occurrence: CA)
  Receive Date: 20241011
  Receipt Date: 20250802
  Transmission Date: 20251021
  Serious: Yes (Other)
  Sender: ALEXION PHARMACEUTICALS
  Company Number: CA-AstraZeneca-CH-00718424A

PATIENT
  Sex: Male

DRUGS (9)
  1. SOLIRIS [Suspect]
     Active Substance: ECULIZUMAB
     Indication: Atypical haemolytic uraemic syndrome
     Dosage: 600 MILLIGRAM, QW
     Dates: start: 20091013
  2. SOLIRIS [Suspect]
     Active Substance: ECULIZUMAB
     Dosage: 900 MILLIGRAM, Q2W
     Dates: start: 20091111
  3. COUMADIN [Concomitant]
     Active Substance: WARFARIN SODIUM
     Route: 065
  4. COUMADIN [Concomitant]
     Active Substance: WARFARIN SODIUM
     Route: 065
  5. FOLIC ACID [Concomitant]
     Active Substance: FOLIC ACID
  6. URSODIOL [Concomitant]
     Active Substance: URSODIOL
  7. ELIQUIS [Concomitant]
     Active Substance: APIXABAN
     Dosage: 2.5 MILLIGRAM, BID
  8. ASPIRIN [Concomitant]
     Active Substance: ASPIRIN
  9. EZETIMIBE [Concomitant]
     Active Substance: EZETIMIBE

REACTIONS (22)
  - Haptoglobin decreased [Unknown]
  - CSF cell count increased [Unknown]
  - Hypertransaminasaemia [Recovering/Resolving]
  - Pulmonary mass [Unknown]
  - Dyspnoea [Unknown]
  - Chest pain [Unknown]
  - Haemorrhage [Unknown]
  - White blood cell count decreased [Unknown]
  - Red blood cell count decreased [Unknown]
  - Haemoglobin decreased [Unknown]
  - Haematocrit decreased [Unknown]
  - Mean cell volume increased [Unknown]
  - Mean cell haemoglobin increased [Unknown]
  - Platelet count increased [Unknown]
  - Lymphocyte count decreased [Unknown]
  - Eosinophil count decreased [Unknown]
  - Reticulocyte count increased [Unknown]
  - Anion gap decreased [Unknown]
  - Blood bilirubin increased [Unknown]
  - Alanine aminotransferase increased [Unknown]
  - Blood alkaline phosphatase increased [Unknown]
  - Serum ferritin increased [Unknown]
